FAERS Safety Report 4994074-7 (Version None)
Quarter: 2006Q1

REPORT INFORMATION
  Report Type: 
  Country: None (occurrence: None)
  Receive Date: 20060313
  Receipt Date: 20050208
  Transmission Date: 20060701
  Serious: Yes (Hospitalization)
  Sender: FDA-Public Use
  Company Number: PHEH2005US01851

PATIENT
  Age: 13 Year
  Sex: Female
  Weight: 41 kg

DRUGS (2)
  1. TRILEPTAL [Suspect]
     Indication: SIMPLE PARTIAL SEIZURES
     Dosage: 300 MG BID ORAL
     Route: 048
     Dates: start: 20050101
  2. TEGRETOL [Suspect]
     Indication: SIMPLE PARTIAL SEIZURES
     Dosage: 800 MG/DAY ORAL
     Route: 048
     Dates: start: 20041212, end: 20050112

REACTIONS (5)
  - HEPATIC ENZYME INCREASED [None]
  - HYPERSENSITIVITY [None]
  - PHARYNGOLARYNGEAL PAIN [None]
  - RASH [None]
  - SWELLING FACE [None]
